FAERS Safety Report 21130927 (Version 2)
Quarter: 2022Q3

REPORT INFORMATION
  Report Type: Report from Study
  Country: DE (occurrence: None)
  Receive Date: 20220726
  Receipt Date: 20220812
  Transmission Date: 20221027
  Serious: Yes (Hospitalization)
  Sender: FDA-Public Use
  Company Number: DE-Merck Healthcare KGaA-9338223

PATIENT
  Age: 63 Year
  Sex: Female

DRUGS (1)
  1. SAIZEN [Suspect]
     Active Substance: SOMATROPIN
     Indication: Growth hormone deficiency
     Dosage: THERAPY START DATE: APPROXIMATELY 2008
     Route: 058

REACTIONS (3)
  - Gastrointestinal inflammation [Not Recovered/Not Resolved]
  - Product dose omission issue [Unknown]
  - Device defective [Unknown]
